FAERS Safety Report 7469890-2 (Version None)
Quarter: 2011Q2

REPORT INFORMATION
  Report Type: 
  Country: None (occurrence: None)
  Receive Date: 20110506
  Receipt Date: 20110506
  Transmission Date: 20111010
  Serious: Yes (Hospitalization)
  Sender: FDA-Public Use
  Company Number: None

PATIENT
  Age: 55 Year
  Sex: Male
  Weight: 102.3 kg

DRUGS (2)
  1. ALLOPURINOL [Suspect]
     Indication: GOUT
     Dosage: 1 TAB EVERY DAY PO
     Route: 048
     Dates: start: 20110315, end: 20110329
  2. ALLOPURINOL [Suspect]
     Indication: HYPERURICAEMIA
     Dosage: 1 TAB EVERY DAY PO
     Route: 048
     Dates: start: 20110315, end: 20110329

REACTIONS (2)
  - GOUT [None]
  - CONDITION AGGRAVATED [None]
